FAERS Safety Report 9671768 (Version 4)
Quarter: 2014Q1

REPORT INFORMATION
  Report Type: Spontaneous
  Country: US (occurrence: US)
  Receive Date: 20131106
  Receipt Date: 20140114
  Transmission Date: 20141002
  Serious: Yes (Hospitalization)
  Sender: FDA-Public Use
  Company Number: US-PFIZER INC-2013315699

PATIENT
  Age: 53 Year
  Sex: Female

DRUGS (5)
  1. XELJANZ [Suspect]
     Indication: RHEUMATOID ARTHRITIS
     Dosage: 5 MG, 2X/DAY
     Route: 048
     Dates: start: 20130415, end: 20131031
  2. XELJANZ [Suspect]
     Indication: IMMUNOSUPPRESSANT DRUG THERAPY
  3. METHOTREXATE [Suspect]
     Indication: RHEUMATOID ARTHRITIS
     Dosage: 15 MG, WEEKLY
     Route: 048
     Dates: end: 20131026
  4. METHOTREXATE [Suspect]
     Indication: IMMUNOSUPPRESSANT DRUG THERAPY
  5. MOBIC [Concomitant]
     Indication: RHEUMATOID ARTHRITIS
     Dosage: 15 MG, DAILY

REACTIONS (24)
  - Herpes zoster [Recovering/Resolving]
  - Rash [Unknown]
  - Lip disorder [Recovered/Resolved]
  - Pruritus [Unknown]
  - Blister [Unknown]
  - Eye swelling [Unknown]
  - Inflammation [Unknown]
  - Neck mass [Unknown]
  - Cheilitis [Unknown]
  - Lymphadenopathy [Unknown]
  - Dry skin [Unknown]
  - Skin warm [Unknown]
  - Transaminases increased [Unknown]
  - Red cell distribution width increased [Unknown]
  - Haemoglobin abnormal [Unknown]
  - Aspartate aminotransferase increased [Unknown]
  - Alanine aminotransferase increased [Unknown]
  - Lymphocyte morphology abnormal [Unknown]
  - Band neutrophil count decreased [Unknown]
  - Eosinophil count abnormal [Unknown]
  - Haematocrit abnormal [Unknown]
  - Monocyte count abnormal [Unknown]
  - Mean platelet volume abnormal [Unknown]
  - Red blood cell count abnormal [Unknown]
